FAERS Safety Report 17220257 (Version 1)
Quarter: 2019Q4

REPORT INFORMATION
  Report Type: Spontaneous
  Country: FR (occurrence: FR)
  Receive Date: 20191231
  Receipt Date: 20191231
  Transmission Date: 20200122
  Serious: Yes (Life-Threatening, Hospitalization)
  Sender: FDA-Public Use
  Company Number: FR-ASTRAZENECA-2019SF92061

PATIENT
  Age: 60 Year
  Sex: Female
  Weight: 140 kg

DRUGS (6)
  1. LEVOTHYROX [Concomitant]
     Active Substance: LEVOTHYROXINE
  2. ZOPICLONE [Suspect]
     Active Substance: ZOPICLONE
     Indication: POISONING DELIBERATE
     Dosage: 75.0MG ONCE/SINGLE ADMINISTRATION
     Route: 048
     Dates: start: 20191204, end: 20191204
  3. TERALITHE [Suspect]
     Active Substance: LITHIUM CARBONATE
     Indication: POISONING DELIBERATE
     Dosage: 8000.0MG ONCE/SINGLE ADMINISTRATION
     Route: 048
     Dates: start: 20191204, end: 20191204
  4. TRANXENE [Concomitant]
     Active Substance: CLORAZEPATE DIPOTASSIUM
  5. QUETIAPINE. [Suspect]
     Active Substance: QUETIAPINE
     Indication: POISONING DELIBERATE
     Dosage: 8000.0MG ONCE/SINGLE ADMINISTRATION
     Route: 048
     Dates: start: 20191204, end: 20191204
  6. CIRCADIN [Suspect]
     Active Substance: MELATONIN
     Indication: POISONING DELIBERATE
     Dosage: 20.0MG ONCE/SINGLE ADMINISTRATION
     Route: 048
     Dates: start: 20191204, end: 20191204

REACTIONS (4)
  - Antipsychotic drug level increased [Recovered/Resolved]
  - Electrocardiogram change [Recovered/Resolved]
  - Coma [Recovered/Resolved]
  - Acidosis [Recovered/Resolved]

NARRATIVE: CASE EVENT DATE: 20191204
